FAERS Safety Report 10492013 (Version 1)
Quarter: 2014Q4

REPORT INFORMATION
  Report Type: Spontaneous
  Country: US (occurrence: US)
  Receive Date: 20141002
  Receipt Date: 20141002
  Transmission Date: 20150528
  Serious: No
  Sender: FDA-Public Use
  Company Number: US-GLAXOSMITHKLINE-A1063910A

PATIENT
  Age: 68 Year
  Sex: Female

DRUGS (12)
  1. INDERAL [Concomitant]
     Active Substance: PROPRANOLOL HYDROCHLORIDE
  2. THYROID MEDICATION [Concomitant]
     Active Substance: UNSPECIFIED INGREDIENT
  3. VALIUM [Concomitant]
     Active Substance: DIAZEPAM
  4. LISINOPRIL. [Concomitant]
     Active Substance: LISINOPRIL
  5. ZYLOPRIM [Concomitant]
     Active Substance: ALLOPURINOL
  6. BLOOD PRESSURE MEDICATION [Concomitant]
     Active Substance: UNSPECIFIED INGREDIENT
  7. SYNTHROID [Concomitant]
     Active Substance: LEVOTHYROXINE SODIUM
  8. THIAZIDE [Concomitant]
     Active Substance: UNSPECIFIED INGREDIENT
  9. SIMVASTATIN. [Concomitant]
     Active Substance: SIMVASTATIN
  10. BABY ASPIRIN [Concomitant]
     Active Substance: ASPIRIN
  11. ADVAIR HFA [Suspect]
     Active Substance: FLUTICASONE PROPIONATE\SALMETEROL XINAFOATE
     Indication: TRAUMATIC LUNG INJURY
     Dosage: 1PUFF PER DAY
     Route: 055
  12. METFORMIN [Concomitant]
     Active Substance: METFORMIN HYDROCHLORIDE

REACTIONS (1)
  - Dysphonia [Not Recovered/Not Resolved]

NARRATIVE: CASE EVENT DATE: 2004
